FAERS Safety Report 24667431 (Version 1)
Quarter: 2024Q4

REPORT INFORMATION
  Report Type: Spontaneous
  Country: US (occurrence: US)
  Receive Date: 20241126
  Receipt Date: 20241126
  Transmission Date: 20250115
  Serious: No
  Sender: TEVA
  Company Number: US-TEVA-VS-3263508

PATIENT
  Age: 54 Year
  Sex: Male

DRUGS (2)
  1. AUSTEDO [Suspect]
     Active Substance: DEUTETRABENAZINE
     Indication: Tardive dyskinesia
     Dosage: 1 TABLET TWICE DAILY, TAKING 1 TABLET IN THE MORNING AND 1 TABLET AT NIGHT.
     Route: 065
     Dates: start: 2024
  2. AUSTEDO [Suspect]
     Active Substance: DEUTETRABENAZINE
     Indication: Tardive dyskinesia
     Dosage: 1 TABLET TWICE DAILY, TAKING 1 TABLET IN THE MORNING AND 1 TABLET AT NIGHT.
     Route: 065
     Dates: start: 2024

REACTIONS (4)
  - Drug ineffective [Unknown]
  - Fatigue [Unknown]
  - Impaired work ability [Unknown]
  - Inappropriate schedule of product administration [Unknown]

NARRATIVE: CASE EVENT DATE: 20240101
